FAERS Safety Report 9382027 (Version 1)
Quarter: 2013Q3

REPORT INFORMATION
  Report Type: Spontaneous
  Country: BR (occurrence: BR)
  Receive Date: 20130703
  Receipt Date: 20130703
  Transmission Date: 20140515
  Serious: Yes (Hospitalization)
  Sender: FDA-Public Use
  Company Number: BR-PFIZER INC-2013195621

PATIENT
  Age: 44 Year
  Sex: Male

DRUGS (1)
  1. CELEBRA [Suspect]
     Dosage: UNK
     Route: 048
     Dates: start: 2012

REACTIONS (1)
  - Device issue [Unknown]
